FAERS Safety Report 13355644 (Version 1)
Quarter: 2017Q1

REPORT INFORMATION
  Report Type: Spontaneous
  Country: US (occurrence: US)
  Receive Date: 20170321
  Receipt Date: 20170321
  Transmission Date: 20170429
  Serious: Yes (Other)
  Sender: FDA-Public Use
  Company Number: US-ASTRAZENECA-2017SE29205

PATIENT
  Age: 42 Year
  Sex: Female
  Weight: 70.3 kg

DRUGS (9)
  1. OTC VITAMIN D [Concomitant]
     Dosage: DAILY
     Route: 048
  2. METOPROLOL TARTRATE. [Suspect]
     Active Substance: METOPROLOL TARTRATE
     Route: 048
     Dates: start: 2015
  3. LOW DOSE ASPIRIN [Concomitant]
     Active Substance: ASPIRIN
     Route: 048
  4. GENERIC SYNTHROID [Concomitant]
     Active Substance: LEVOTHYROXINE SODIUM
     Indication: THYROID DISORDER
     Dates: start: 2000
  5. OMEPRAZOLE. [Suspect]
     Active Substance: OMEPRAZOLE
     Indication: GASTROOESOPHAGEAL REFLUX DISEASE
     Route: 048
     Dates: start: 2000
  6. BRILINTA [Suspect]
     Active Substance: TICAGRELOR
     Indication: ARTERIAL OCCLUSIVE DISEASE
     Route: 048
     Dates: start: 20170227
  7. FLUOXETINE [Concomitant]
     Active Substance: FLUOXETINE HYDROCHLORIDE
     Indication: ANXIETY
     Route: 048
     Dates: start: 2013
  8. LOSARTAN. [Concomitant]
     Active Substance: LOSARTAN
     Dates: start: 2012
  9. NORVASC [Concomitant]
     Active Substance: AMLODIPINE BESYLATE
     Dates: start: 2012

REACTIONS (5)
  - Scleroderma [Unknown]
  - Off label use [Unknown]
  - Arterial occlusive disease [Unknown]
  - Raynaud^s phenomenon [Unknown]
  - Hypothyroidism [Unknown]

NARRATIVE: CASE EVENT DATE: 2000
